FAERS Safety Report 6491623-7 (Version None)
Quarter: 2009Q4

REPORT INFORMATION
  Report Type: 
  Country: None (occurrence: None)
  Receive Date: 20091125
  Receipt Date: 20090304
  Transmission Date: 20100525
  Serious: Yes (Other)
  Sender: FDA-Public Use
  Company Number: 2009BH003611

PATIENT
  Age: 76 Year
  Sex: Female

DRUGS (15)
  1. DIANEAL [Suspect]
     Indication: PERITONEAL DIALYSIS
     Dosage: 9 L ; EVERY DAY ; IP
     Route: 033
     Dates: start: 20000216
  2. DIANEAL [Suspect]
     Indication: PERITONEAL DIALYSIS
     Dosage: 2 L ; PRN ; IP
     Route: 033
     Dates: start: 20000216
  3. DIANEAL [Suspect]
  4. CLONIDINE [Concomitant]
  5. COLACE [Concomitant]
  6. DIOVAN [Concomitant]
  7. HUMULIN R [Concomitant]
  8. IRON SALTS [Concomitant]
  9. LANTUS [Concomitant]
  10. NIFEREX [Concomitant]
  11. RENAGEL [Concomitant]
  12. ZEMPLAR [Concomitant]
  13. PLAVIX [Concomitant]
  14. REGLAN [Concomitant]
  15. ZETIA [Concomitant]

REACTIONS (2)
  - PERITONEAL DIALYSIS COMPLICATION [None]
  - PERITONITIS BACTERIAL [None]
